FAERS Safety Report 5638656-8 (Version None)
Quarter: 2008Q1

REPORT INFORMATION
  Report Type: 
  Country: None (occurrence: None)
  Receive Date: 20080226
  Receipt Date: 20070927
  Transmission Date: 20080703
  Serious: No
  Sender: FDA-Public Use
  Company Number: A0676042A

PATIENT
  Age: 49 Year
  Sex: Female
  Weight: 45.9 kg

DRUGS (3)
  1. IMITREX [Suspect]
     Indication: MIGRAINE
     Dosage: 6MGML VARIABLE DOSE
     Route: 058
  2. IMITREX [Concomitant]
  3. NONE [Concomitant]

REACTIONS (11)
  - CONTUSION [None]
  - DIZZINESS [None]
  - HYPOAESTHESIA [None]
  - INJECTION SITE ERYTHEMA [None]
  - INJECTION SITE HAEMORRHAGE [None]
  - INJECTION SITE IRRITATION [None]
  - INJECTION SITE REACTION [None]
  - INJECTION SITE SWELLING [None]
  - INJECTION SITE WARMTH [None]
  - NAUSEA [None]
  - PHARMACEUTICAL PRODUCT COMPLAINT [None]
